FAERS Safety Report 23460494 (Version 3)
Quarter: 2024Q1

REPORT INFORMATION
  Report Type: Spontaneous
  Country: DE (occurrence: DE)
  Receive Date: 20240131
  Receipt Date: 20240311
  Transmission Date: 20240410
  Serious: Yes (Hospitalization)
  Sender: FDA-Public Use
  Company Number: DE-ABBVIE-5608411

PATIENT
  Sex: Female

DRUGS (1)
  1. SKYRIZI [Suspect]
     Active Substance: RISANKIZUMAB-RZAA
     Indication: Crohn^s disease
     Dosage: FORM STRENGTH: 600 MILLIGRAM?FREQUENCY TEXT: 2 TIMES SO FAR
     Route: 042
     Dates: start: 20231212, end: 20240109

REACTIONS (1)
  - Antinuclear antibody positive [Recovering/Resolving]

NARRATIVE: CASE EVENT DATE: 20240109
